FAERS Safety Report 6108236-9 (Version None)
Quarter: 2009Q1

REPORT INFORMATION
  Report Type: 
  Country: None (occurrence: None)
  Receive Date: 20090304
  Receipt Date: 20080716
  Transmission Date: 20090719
  Serious: Yes (Other)
  Sender: FDA-Public Use
  Company Number: US-001452

PATIENT
  Age: 71 Year
  Sex: Male
  Weight: 94.5 kg

DRUGS (9)
  1. ISOVUE-300 [Suspect]
     Indication: COMPUTERISED TOMOGRAM ABDOMEN
     Dosage: 150ML QD INTRAVENOUS
     Route: 042
     Dates: start: 20080627, end: 20080627
  2. ISOVUE-300 [Suspect]
     Indication: RECTAL CANCER
     Dosage: 150ML QD INTRAVENOUS
     Route: 042
     Dates: start: 20080627, end: 20080627
  3. ATENOL (ATENOLOL) [Concomitant]
  4. GLYBURIDE [Concomitant]
  5. ALDACTONE [Concomitant]
  6. COUMADIN [Concomitant]
  7. QUINAPRIL HCL [Concomitant]
  8. BUMAX (IBUPROFEN) [Concomitant]
  9. LIPITOR [Concomitant]

REACTIONS (1)
  - ANAPHYLACTOID REACTION [None]
